FAERS Safety Report 12960318 (Version 4)
Quarter: 2016Q4

REPORT INFORMATION
  Report Type: Report from Study
  Country: US (occurrence: US)
  Receive Date: 20161121
  Receipt Date: 20161230
  Transmission Date: 20170207
  Serious: Yes (Death, Life-Threatening, Hospitalization, Other)
  Sender: FDA-Public Use
  Company Number: US-009507513-1611USA007221

PATIENT
  Age: 78 Year
  Sex: Male

DRUGS (3)
  1. KEYTRUDA [Suspect]
     Active Substance: PEMBROLIZUMAB
     Indication: MESOTHELIOMA MALIGNANT
     Dosage: UNK
     Route: 041
     Dates: start: 20160722, end: 20160722
  2. KEYTRUDA [Suspect]
     Active Substance: PEMBROLIZUMAB
     Dosage: UNK
     Route: 041
     Dates: start: 20160902, end: 20160902
  3. KEYTRUDA [Suspect]
     Active Substance: PEMBROLIZUMAB
     Dosage: UNK
     Route: 041
     Dates: start: 20160812, end: 20160812

REACTIONS (5)
  - Dyspnoea [Fatal]
  - Product use issue [Unknown]
  - Malignant neoplasm progression [Unknown]
  - Cough [Unknown]
  - Pleural effusion [Fatal]

NARRATIVE: CASE EVENT DATE: 2016
